FAERS Safety Report 5131512-3 (Version None)
Quarter: 2006Q4

REPORT INFORMATION
  Report Type: 
  Country: None (occurrence: None)
  Receive Date: 20061020
  Receipt Date: 20061013
  Transmission Date: 20070319
  Serious: Yes (Hospitalization)
  Sender: FDA-Public Use
  Company Number: TR-NOVOPROD-257775

PATIENT
  Age: 0 Day

DRUGS (1)
  1. LEVEMIR [Suspect]
     Indication: INSULIN-REQUIRING TYPE II DIABETES MELLITUS
     Dosage: 35 IU, QD
     Route: 064
     Dates: start: 20050811, end: 20050816

REACTIONS (3)
  - CAESAREAN SECTION [None]
  - NEONATAL RESPIRATORY FAILURE [None]
  - RESPIRATORY FAILURE [None]
